FAERS Safety Report 4718545-3 (Version None)
Quarter: 2005Q3

REPORT INFORMATION
  Report Type: 
  Country: None (occurrence: None)
  Receive Date: 20050720
  Receipt Date: 20050713
  Transmission Date: 20060218
  Serious: Yes (Hospitalization)
  Sender: FDA-Public Use
  Company Number: PHHO2005JP11153

PATIENT
  Age: 34 Year
  Sex: Male

DRUGS (1)
  1. TOFRANIL [Suspect]
     Indication: DEPRESSION
     Route: 048
     Dates: start: 20031105, end: 20031121

REACTIONS (1)
  - MANIA [None]
